FAERS Safety Report 4741000-1 (Version None)
Quarter: 2005Q3

REPORT INFORMATION
  Report Type: 
  Country: None (occurrence: None)
  Receive Date: 20050810
  Receipt Date: 20050601
  Transmission Date: 20060218
  Serious: No
  Sender: FDA-Public Use
  Company Number: US-GLAXOSMITHKLINE-A0560739A

PATIENT
  Age: 73 Year
  Sex: Female

DRUGS (6)
  1. PAROXETINE HCL [Suspect]
     Indication: DEPRESSION
     Dosage: 20MG PER DAY
     Route: 048
     Dates: start: 20050524
  2. PAXIL [Suspect]
     Indication: DEPRESSION
     Dosage: 12.5MG PER DAY
     Route: 048
     Dates: start: 20050104, end: 20050523
  3. ALLOPURINOL [Concomitant]
  4. COLCHICINE [Concomitant]
  5. AMILORIDE HCL [Concomitant]
     Route: 065
  6. MULTI-VITAMINS [Concomitant]

REACTIONS (2)
  - MUSCLE SPASMS [None]
  - SOMNOLENCE [None]
